FAERS Safety Report 22652127 (Version 1)
Quarter: 2023Q2

REPORT INFORMATION
  Report Type: Spontaneous
  Country: CN (occurrence: CN)
  Receive Date: 20230628
  Receipt Date: 20230628
  Transmission Date: 20230721
  Serious: Yes (Hospitalization)
  Sender: FDA-Public Use
  Company Number: CN-Merck Healthcare KGaA-2023455475

PATIENT
  Age: 83 Year
  Sex: Male
  Weight: 51 kg

DRUGS (1)
  1. ERBITUX [Suspect]
     Active Substance: CETUXIMAB
     Indication: Squamous cell carcinoma
     Dosage: 400 MG, DAILY
     Route: 041
     Dates: start: 20230522, end: 20230522

REACTIONS (1)
  - Myelosuppression [Recovering/Resolving]
